FAERS Safety Report 7678787-4 (Version None)
Quarter: 2011Q3

REPORT INFORMATION
  Report Type: 
  Country: None (occurrence: None)
  Receive Date: 20110811
  Receipt Date: 20110802
  Transmission Date: 20111222
  Serious: Yes (Other)
  Sender: FDA-Public Use
  Company Number: KR-ASTRAZENECA-2011SE46168

PATIENT

DRUGS (1)
  1. BUPIVACAINE HCL [Suspect]
     Route: 053

REACTIONS (3)
  - LOSS OF CONSCIOUSNESS [None]
  - CONVULSION [None]
  - URINARY INCONTINENCE [None]
